FAERS Safety Report 22293254 (Version 2)
Quarter: 2023Q2

REPORT INFORMATION
  Report Type: Spontaneous
  Country: JP (occurrence: JP)
  Receive Date: 20230508
  Receipt Date: 20230512
  Transmission Date: 20230722
  Serious: Yes (Hospitalization, Other)
  Sender: FDA-Public Use
  Company Number: None

PATIENT
  Age: 63 Year
  Sex: Female

DRUGS (6)
  1. METHOTREXATE [Suspect]
     Active Substance: METHOTREXATE
     Indication: Rheumatoid arthritis
     Dosage: 8 MILLIGRAM, ONCE A WEEK, RECEIVING TREATMENT FROM 2 YEARS
     Route: 065
  2. METHOTREXATE [Suspect]
     Active Substance: METHOTREXATE
     Indication: Immunosuppressant drug therapy
  3. METHYLPREDNISOLONE [Suspect]
     Active Substance: METHYLPREDNISOLONE
     Indication: Rheumatoid arthritis
     Dosage: 4 MILLIGRAM, QD, PER DAY, RECEIVING TREATMENT FROM 2 YEARS
     Route: 065
  4. METHYLPREDNISOLONE [Suspect]
     Active Substance: METHYLPREDNISOLONE
     Indication: Immunosuppressant drug therapy
  5. UPADACITINIB [Suspect]
     Active Substance: UPADACITINIB
     Indication: Rheumatoid arthritis
     Dosage: 15 MILLIGRAM, QD, PER DAY, RECEIVING TREATMENT FROM 2 YEARS
     Route: 065
  6. UPADACITINIB [Suspect]
     Active Substance: UPADACITINIB
     Indication: Immunosuppressant drug therapy

REACTIONS (6)
  - Ileus paralytic [Recovered/Resolved]
  - Pancreatitis acute [Recovered/Resolved]
  - Disseminated varicella zoster virus infection [Recovered/Resolved]
  - Herpes zoster disseminated [Recovered/Resolved]
  - Infection reactivation [Recovered/Resolved]
  - Off label use [Unknown]
